FAERS Safety Report 20698597 (Version 1)
Quarter: 2022Q2

REPORT INFORMATION
  Report Type: Spontaneous
  Country: US (occurrence: US)
  Receive Date: 20220412
  Receipt Date: 20220412
  Transmission Date: 20220721
  Serious: No
  Sender: FDA-Public Use
  Company Number: US-LUNDBECK-DKLU3046242

PATIENT
  Age: 34 Year
  Sex: Female

DRUGS (2)
  1. NORTHERA [Suspect]
     Active Substance: DROXIDOPA
     Indication: Arrhythmia
     Route: 065
     Dates: start: 20210809
  2. NORTHERA [Suspect]
     Active Substance: DROXIDOPA
     Indication: Dizziness

REACTIONS (1)
  - Intentional underdose [Unknown]
